FAERS Safety Report 9254877 (Version 2)
Quarter: 2013Q2

REPORT INFORMATION
  Report Type: Report from Study
  Country: AT (occurrence: AT)
  Receive Date: 20130425
  Receipt Date: 20130503
  Transmission Date: 20140414
  Serious: Yes (Life-Threatening, Hospitalization, Disabling)
  Sender: FDA-Public Use
  Company Number: AT-ROCHE-1217483

PATIENT
  Age: 62 Year
  Sex: Male

DRUGS (14)
  1. BEVACIZUMAB [Suspect]
     Indication: COLORECTAL CANCER METASTATIC
     Route: 065
  2. CAPECITABINE [Suspect]
     Indication: COLORECTAL CANCER METASTATIC
     Route: 065
     Dates: start: 20130130, end: 20130326
  3. IRINOTECAN [Suspect]
     Indication: COLORECTAL CANCER METASTATIC
     Route: 065
  4. OXALIPLATIN [Suspect]
     Indication: COLORECTAL CANCER METASTATIC
     Route: 065
  5. ACEMIN [Concomitant]
  6. FRAGMIN [Concomitant]
  7. PARACETAMOL [Concomitant]
  8. TAZONAM [Concomitant]
  9. DALACIN [Concomitant]
  10. DEFLAMAT [Concomitant]
  11. SUCRALAN [Concomitant]
  12. AGOPTON [Concomitant]
  13. ZOFRAN [Concomitant]
  14. XANOR [Concomitant]

REACTIONS (1)
  - Large intestine perforation [Recovered/Resolved]
